FAERS Safety Report 7732210-X (Version None)
Quarter: 2011Q3

REPORT INFORMATION
  Report Type: 
  Country: None (occurrence: None)
  Receive Date: 20110906
  Receipt Date: 20110818
  Transmission Date: 20111222
  Serious: No
  Sender: FDA-Public Use
  Company Number: US-AMGEN-USASP2011042249

PATIENT
  Sex: Male

DRUGS (7)
  1. REMERON [Concomitant]
     Indication: ANXIETY
  2. XGEVA [Suspect]
     Indication: METASTASES TO BONE
     Dosage: UNK UNK, Q4WK
     Dates: start: 20110701
  3. REMERON [Concomitant]
     Indication: INSOMNIA
  4. LISINOPRIL [Concomitant]
     Indication: HYPERTENSION
  5. KEPPRA [Concomitant]
     Indication: CONVULSION
  6. REMERON [Concomitant]
     Indication: DECREASED APPETITE
  7. MULTIVITAMIN                       /00097801/ [Concomitant]

REACTIONS (2)
  - DYSPNOEA EXERTIONAL [None]
  - FATIGUE [None]
